FAERS Safety Report 14551859 (Version 9)
Quarter: 2022Q3

REPORT INFORMATION
  Report Type: Spontaneous
  Country: US (occurrence: US)
  Receive Date: 20180220
  Receipt Date: 20220720
  Transmission Date: 20221027
  Serious: Yes (Other)
  Sender: FDA-Public Use
  Company Number: US-PFIZER INC-2018070768

PATIENT
  Age: 71 Year
  Sex: Female
  Weight: 90.72 kg

DRUGS (6)
  1. XELJANZ [Suspect]
     Active Substance: TOFACITINIB CITRATE
     Indication: Rheumatoid arthritis
     Dosage: 5 MG, 2X/DAY
     Route: 048
  2. OMEPRAZOLE [Concomitant]
     Active Substance: OMEPRAZOLE
     Indication: Dyspepsia
     Dosage: UNK
  3. TAMSULOSIN [Concomitant]
     Active Substance: TAMSULOSIN
     Indication: Bone disorder
     Dosage: WEEKLY
  4. SERTRALINE [Concomitant]
     Active Substance: SERTRALINE HYDROCHLORIDE
     Indication: Depression
     Dosage: DAILY
     Dates: start: 2017
  5. ALENDRONATE [Concomitant]
     Active Substance: ALENDRONATE SODIUM
     Indication: Osteoporosis
     Dosage: WEEKLY
     Dates: start: 2017
  6. NORCO [Concomitant]
     Active Substance: ACETAMINOPHEN\HYDROCODONE BITARTRATE
     Indication: Pain
     Dosage: AS NEEDED
     Dates: start: 2010

REACTIONS (9)
  - Pneumonia [Recovered/Resolved]
  - Cataract [Unknown]
  - Blood cholesterol increased [Unknown]
  - Condition aggravated [Unknown]
  - Pain [Unknown]
  - Amnesia [Unknown]
  - COVID-19 [Unknown]
  - Stress urinary incontinence [Unknown]
  - Cough [Unknown]

NARRATIVE: CASE EVENT DATE: 20180201
